FAERS Safety Report 9125761 (Version 1)
Quarter: 2013Q1

REPORT INFORMATION
  Report Type: Spontaneous
  Country: US (occurrence: US)
  Receive Date: 20130121
  Receipt Date: 20130121
  Transmission Date: 20140127
  Serious: Yes (Death, Other)
  Sender: FDA-Public Use
  Company Number: US-JNJFOC-20130104830

PATIENT
  Sex: 0

DRUGS (14)
  1. INFLIXIMAB, RECOMBINANT [Suspect]
     Indication: ANKYLOSING SPONDYLITIS
     Route: 042
  2. INFLIXIMAB, RECOMBINANT [Suspect]
     Indication: COLITIS ULCERATIVE
     Route: 042
  3. INFLIXIMAB, RECOMBINANT [Suspect]
     Indication: CROHN^S DISEASE
     Route: 042
  4. INFLIXIMAB, RECOMBINANT [Suspect]
     Indication: PSORIATIC ARTHROPATHY
     Route: 042
  5. INFLIXIMAB, RECOMBINANT [Suspect]
     Indication: PSORIASIS
     Route: 042
  6. INFLIXIMAB, RECOMBINANT [Suspect]
     Indication: RHEUMATOID ARTHRITIS
     Route: 042
  7. ADALIMUMAB [Suspect]
     Indication: COLITIS ULCERATIVE
     Route: 065
  8. ADALIMUMAB [Suspect]
     Indication: PSORIASIS
     Route: 065
  9. ADALIMUMAB [Suspect]
     Indication: ANKYLOSING SPONDYLITIS
     Route: 065
  10. ADALIMUMAB [Suspect]
     Indication: CROHN^S DISEASE
     Route: 065
  11. ADALIMUMAB [Suspect]
     Indication: PSORIATIC ARTHROPATHY
     Route: 065
  12. ADALIMUMAB [Suspect]
     Indication: RHEUMATOID ARTHRITIS
     Route: 065
  13. PREDNISONE [Concomitant]
     Route: 065
  14. METHOTREXATE [Concomitant]
     Route: 065

REACTIONS (4)
  - Mycobacterial infection [Fatal]
  - Tuberculosis [Unknown]
  - Pulmonary tuberculosis [Unknown]
  - Extrapulmonary tuberculosis [Unknown]
